FAERS Safety Report 6042568-8 (Version None)
Quarter: 2009Q1

REPORT INFORMATION
  Report Type: 
  Country: None (occurrence: None)
  Receive Date: 20090119
  Receipt Date: 20090112
  Transmission Date: 20090719
  Serious: Yes (Other)
  Sender: FDA-Public Use
  Company Number: US-JNJFOC-20090102315

PATIENT
  Sex: Female
  Weight: 65.77 kg

DRUGS (5)
  1. FENTANYL TRANSDERMAL SYSTEM [Suspect]
     Indication: SYSTEMIC LUPUS ERYTHEMATOSUS
     Route: 062
     Dates: start: 20050101
  2. FENTANYL [Suspect]
     Indication: SYSTEMIC LUPUS ERYTHEMATOSUS
     Route: 062
     Dates: start: 20050101
  3. LORTAB [Concomitant]
     Indication: BREAKTHROUGH PAIN
     Dosage: AS NEEDED
  4. XANAX [Concomitant]
     Indication: ANXIETY
     Route: 048
  5. PROVENTIL GENTLEHALER [Concomitant]
     Indication: ASTHMA
     Dosage: AS NEEDED
     Route: 055

REACTIONS (6)
  - FATIGUE [None]
  - HYPERSOMNIA [None]
  - INCORRECT DRUG ADMINISTRATION DURATION [None]
  - MEMORY IMPAIRMENT [None]
  - REPETITIVE SPEECH [None]
  - WRONG TECHNIQUE IN DRUG USAGE PROCESS [None]
